FAERS Safety Report 20447771 (Version 2)
Quarter: 2022Q1

REPORT INFORMATION
  Report Type: Spontaneous
  Country: DE (occurrence: DE)
  Receive Date: 20220209
  Receipt Date: 20220310
  Transmission Date: 20220423
  Serious: Yes (Hospitalization, Other)
  Sender: FDA-Public Use
  Company Number: DE-BFARM-22000435

PATIENT
  Age: 15 Year
  Sex: Male
  Weight: 120 kg

DRUGS (2)
  1. ISOTRETINOIN [Suspect]
     Active Substance: ISOTRETINOIN
     Indication: Acne
     Dosage: 60 MILLIGRAM, DAILY
     Route: 048
     Dates: start: 202109
  2. ISOTRETINOIN [Suspect]
     Active Substance: ISOTRETINOIN
     Dosage: CURRENT INTAKE OF 30MG / DAY
     Route: 048

REACTIONS (4)
  - Aspartate aminotransferase [Recovered/Resolved]
  - Blood creatine phosphokinase increased [Recovered/Resolved]
  - Myoglobinaemia [Recovered/Resolved]
  - Alanine aminotransferase increased [Recovered/Resolved]
